FAERS Safety Report 17271305 (Version 2)
Quarter: 2020Q1

REPORT INFORMATION
  Report Type: Report from Study
  Country: None (occurrence: US)
  Receive Date: 20200115
  Receipt Date: 20200302
  Transmission Date: 20200409
  Serious: Yes (Other)
  Sender: FDA-Public Use
  Company Number: US-ABBVIE-18K-163-2229395-00

PATIENT
  Sex: Male
  Weight: 83.99 kg

DRUGS (2)
  1. HUMIRA [Suspect]
     Active Substance: ADALIMUMAB
     Indication: CROHN^S DISEASE
     Route: 058
  2. PANTOPRAZOLE SODIUM. [Concomitant]
     Active Substance: PANTOPRAZOLE SODIUM
     Indication: GASTRIC PH DECREASED

REACTIONS (6)
  - Gastric pH decreased [Unknown]
  - Large intestinal haemorrhage [Unknown]
  - Swelling [Unknown]
  - Abscess intestinal [Unknown]
  - Pruritus [Unknown]
  - Crohn^s disease [Not Recovered/Not Resolved]
